FAERS Safety Report 21696534 (Version 1)
Quarter: 2022Q4

REPORT INFORMATION
  Report Type: Spontaneous
  Country: US (occurrence: US)
  Receive Date: 20221207
  Receipt Date: 20221207
  Transmission Date: 20230113
  Serious: No
  Sender: FDA-Public Use
  Company Number: US-SA-SAC20221206000077

PATIENT
  Age: 68 Year
  Sex: Female

DRUGS (1)
  1. DUPIXENT [Suspect]
     Active Substance: DUPILUMAB
     Indication: Dermatitis
     Dosage: 300 MG, QOW
     Route: 058
     Dates: start: 202210

REACTIONS (8)
  - Rosacea [Not Recovered/Not Resolved]
  - Pruritus [Not Recovered/Not Resolved]
  - Parosmia [Not Recovered/Not Resolved]
  - Food allergy [Not Recovered/Not Resolved]
  - Migraine [Not Recovered/Not Resolved]
  - Eyelid ptosis [Not Recovered/Not Resolved]
  - Visual impairment [Unknown]
  - Product use in unapproved indication [Unknown]

NARRATIVE: CASE EVENT DATE: 20221001
